FAERS Safety Report 4340056-8 (Version None)
Quarter: 2004Q2

REPORT INFORMATION
  Report Type: 
  Country: None (occurrence: None)
  Receive Date: 20040415
  Receipt Date: 20040415
  Transmission Date: 20050107
  Serious: Yes (Death)
  Sender: FDA-Public Use
  Company Number: None

PATIENT
  Age: 63 Year
  Sex: Female
  Weight: 51.7101 kg

DRUGS (15)
  1. DOCETAXEL [Suspect]
     Indication: PANCREATIC CARCINOMA
     Dosage: 45 MG
     Dates: start: 20040318
  2. IRINOTECAN [Suspect]
     Dosage: 76 MG
     Dates: start: 20040318
  3. MARINOL [Concomitant]
  4. DURAGESIC [Concomitant]
  5. ATIVAN [Concomitant]
  6. PRILOSEC [Concomitant]
  7. ULTRAM [Concomitant]
  8. CELEXA [Concomitant]
  9. COMPAZINE [Concomitant]
  10. DECADRON [Concomitant]
  11. ANZEMET [Concomitant]
  12. MEGACE [Concomitant]
  13. LOTENEX [Concomitant]
  14. EPOGEN [Concomitant]
  15. ZOFRAN [Concomitant]

REACTIONS (1)
  - DISEASE PROGRESSION [None]
